FAERS Safety Report 6519616-1 (Version None)
Quarter: 2009Q4

REPORT INFORMATION
  Report Type: 
  Country: None (occurrence: None)
  Receive Date: 20091228
  Receipt Date: 20091214
  Transmission Date: 20100525
  Serious: Yes (Other)
  Sender: FDA-Public Use
  Company Number: SE-MYLANLABS-2009S1021539

PATIENT
  Age: 67 Year
  Sex: Female

DRUGS (1)
  1. MAPROTILINE [Suspect]
     Indication: SLEEP DISORDER
     Dates: start: 19940101

REACTIONS (6)
  - ANXIETY [None]
  - DRY EYE [None]
  - FEELING ABNORMAL [None]
  - HEADACHE [None]
  - HEART RATE INCREASED [None]
  - MIGRAINE WITH AURA [None]
